FAERS Safety Report 25067339 (Version 1)
Quarter: 2025Q1

REPORT INFORMATION
  Report Type: Other
  Country: FR (occurrence: FR)
  Receive Date: 20250312
  Receipt Date: 20250312
  Transmission Date: 20250409
  Serious: Yes (Life-Threatening)
  Sender: Atnahs Healthcare
  Company Number: None

PATIENT
  Age: 25 Year
  Sex: Male

DRUGS (6)
  1. DIAZEPAM [Suspect]
     Active Substance: DIAZEPAM
     Indication: Toxicity to various agents
     Route: 048
     Dates: start: 20250208, end: 20250208
  2. BACLOFEN [Suspect]
     Active Substance: BACLOFEN
     Indication: Toxicity to various agents
     Route: 048
     Dates: start: 20250208, end: 20250208
  3. LOXAPINE SUCCINATE [Suspect]
     Active Substance: LOXAPINE SUCCINATE
     Indication: Toxicity to various agents
     Route: 048
     Dates: start: 20250208, end: 20250208
  4. DOLIPRANE [Suspect]
     Active Substance: ACETAMINOPHEN
     Indication: Toxicity to various agents
     Route: 048
     Dates: start: 20250208, end: 20250208
  5. ACETAMINOPHEN\BELLADONNA LEAF\CAFFEINE\OPIUM [Suspect]
     Active Substance: ACETAMINOPHEN\BELLADONNA LEAF\CAFFEINE\OPIUM
     Indication: Toxicity to various agents
     Route: 048
     Dates: start: 20250208, end: 20250208
  6. VALPROATE SODIUM [Suspect]
     Active Substance: VALPROATE SODIUM
     Indication: Toxicity to various agents
     Route: 048
     Dates: start: 20250208, end: 20250208

REACTIONS (4)
  - Coma [Recovered/Resolved]
  - Bradycardia [Recovered/Resolved]
  - Hypotension [Recovered/Resolved]
  - Intentional product misuse [Recovered/Resolved]

NARRATIVE: CASE EVENT DATE: 20250208
